FAERS Safety Report 16681841 (Version 1)
Quarter: 2019Q3

REPORT INFORMATION
  Report Type: Spontaneous
  Country: FR (occurrence: FR)
  Receive Date: 20190808
  Receipt Date: 20190808
  Transmission Date: 20191004
  Serious: Yes (Other)
  Sender: FDA-Public Use
  Company Number: FR-SA-2019SA215429

PATIENT
  Age: 71 Year
  Sex: Female

DRUGS (3)
  1. KEVZARA [Suspect]
     Active Substance: SARILUMAB
     Indication: RHEUMATOID ARTHRITIS
     Dosage: 200 MG
  2. FENTANYL. [Concomitant]
     Active Substance: FENTANYL
  3. MORPHINE [Concomitant]
     Active Substance: MORPHINE

REACTIONS (3)
  - Back pain [Unknown]
  - Hypokinesia [Unknown]
  - Spinal fracture [Unknown]
